FAERS Safety Report 8251365-4 (Version None)
Quarter: 2012Q2

REPORT INFORMATION
  Report Type: 
  Country: None (occurrence: None)
  Receive Date: 20120402
  Receipt Date: 20120324
  Transmission Date: 20120825
  Serious: Yes (Other)
  Sender: FDA-Public Use
  Company Number: GB-GLAXOSMITHKLINE-B0791252A

PATIENT
  Sex: Female

DRUGS (1)
  1. PAROXETINE HYDROCHLORIDE [Suspect]
     Indication: INTENTIONAL SELF-INJURY
     Dosage: 20MG PER DAY
     Route: 065
     Dates: end: 20120301

REACTIONS (17)
  - HYPERHIDROSIS [None]
  - BINGE EATING [None]
  - SUICIDAL IDEATION [None]
  - ANGLE CLOSURE GLAUCOMA [None]
  - LOSS OF EMPLOYMENT [None]
  - SOCIAL PROBLEM [None]
  - JAUNDICE [None]
  - BLINDNESS TRANSIENT [None]
  - ABNORMAL BEHAVIOUR [None]
  - WEIGHT INCREASED [None]
  - SEROTONIN SYNDROME [None]
  - DYSURIA [None]
  - SCLERAL DISCOLOURATION [None]
  - OPHTHALMOPLEGIA [None]
  - MENSTRUAL DISORDER [None]
  - HYPERTHERMIA [None]
  - ABNORMAL SENSATION IN EYE [None]
